FAERS Safety Report 8200966-8 (Version None)
Quarter: 2012Q1

REPORT INFORMATION
  Report Type: 
  Country: None (occurrence: None)
  Receive Date: 20120312
  Receipt Date: 20110921
  Transmission Date: 20120608
  Serious: No
  Sender: FDA-Public Use
  Company Number: US-ABBOTT-11P-163-0857768-00

PATIENT
  Sex: Female
  Weight: 81.72 kg

DRUGS (3)
  1. ALBUTEROL [Concomitant]
     Indication: ASTHMA
  2. LUPRON DEPOT [Suspect]
     Indication: UTERINE LEIOMYOMA
     Dates: start: 20110701
  3. ADVAIR DISKUS 100/50 [Concomitant]
     Indication: PRODUCT USED FOR UNKNOWN INDICATION

REACTIONS (4)
  - VOMITING [None]
  - PAROSMIA [None]
  - ASTHMA [None]
  - NAUSEA [None]
